FAERS Safety Report 17580105 (Version 2)
Quarter: 2021Q4

REPORT INFORMATION
  Report Type: Spontaneous
  Country: FR (occurrence: FR)
  Receive Date: 20200325
  Receipt Date: 20211108
  Transmission Date: 20220304
  Serious: Yes (Hospitalization)
  Sender: FDA-Public Use
  Company Number: None

PATIENT
  Age: 33 Year
  Sex: Male
  Weight: 85 kg

DRUGS (5)
  1. VENLAFAXINE HCL [Suspect]
     Active Substance: VENLAFAXINE HYDROCHLORIDE
     Dosage: UNK
     Route: 048
     Dates: start: 20200227, end: 20200227
  2. ALPRAZOLAM [Suspect]
     Active Substance: ALPRAZOLAM
     Dosage: UNK
     Route: 048
     Dates: start: 20200227, end: 20200227
  3. TRIMEPRAZINE [Suspect]
     Active Substance: TRIMEPRAZINE
     Dosage: UNK
     Route: 048
     Dates: start: 20200227, end: 20200227
  4. VALPROATE SODIUM [Suspect]
     Active Substance: VALPROATE SODIUM
     Dosage: UNK
     Route: 048
     Dates: start: 20200227, end: 20200227
  5. CYAMEMAZINE [Suspect]
     Active Substance: CYAMEMAZINE
     Dosage: UNK
     Dates: start: 20200227, end: 20200227

REACTIONS (2)
  - Coma [Recovered/Resolved]
  - Toxicity to various agents [Unknown]

NARRATIVE: CASE EVENT DATE: 20200227
